FAERS Safety Report 8068052-8 (Version None)
Quarter: 2012Q1

REPORT INFORMATION
  Report Type: 
  Country: None (occurrence: None)
  Receive Date: 20120124
  Receipt Date: 20110919
  Transmission Date: 20120608
  Serious: No
  Sender: FDA-Public Use
  Company Number: US-AMGEN-USASP2011048231

PATIENT
  Sex: Female

DRUGS (9)
  1. CALCIUM [Concomitant]
     Dosage: UNK
  2. RITUXAN [Concomitant]
     Dosage: UNK
  3. PREDNISONE [Concomitant]
     Dosage: UNK
  4. VITAMIN D [Concomitant]
     Dosage: UNK
  5. PERCOCET [Concomitant]
     Dosage: UNK
  6. PROLIA [Suspect]
     Indication: OSTEOPOROSIS POSTMENOPAUSAL
     Dosage: 1 MG, Q6MO
     Route: 058
     Dates: start: 20110501
  7. OXYCONTIN [Concomitant]
     Dosage: UNK
  8. METOPROLOL TARTRATE [Concomitant]
     Dosage: UNK
  9. MAGNESIUM SULFATE [Concomitant]
     Dosage: UNK

REACTIONS (3)
  - SALIVA ALTERED [None]
  - DYSGEUSIA [None]
  - STOMATITIS [None]
